FAERS Safety Report 19121071 (Version 5)
Quarter: 2021Q4

REPORT INFORMATION
  Report Type: Spontaneous
  Country: IT (occurrence: IT)
  Receive Date: 20210412
  Receipt Date: 20211018
  Transmission Date: 20220304
  Serious: Yes (Other)
  Sender: FDA-Public Use
  Company Number: IT-MYLANLABS-2021M1020413

PATIENT
  Age: 71 Year
  Sex: Male

DRUGS (62)
  1. SERTRALINE [Suspect]
     Active Substance: SERTRALINE HYDROCHLORIDE
     Indication: Affective disorder
     Dosage: UNK
     Route: 048
     Dates: start: 2010, end: 2020
  2. SERTRALINE [Suspect]
     Active Substance: SERTRALINE HYDROCHLORIDE
     Indication: Memory impairment
  3. PAROXETINE [Suspect]
     Active Substance: PAROXETINE
     Indication: Affective disorder
     Dosage: UNK
     Route: 048
     Dates: start: 2010, end: 2020
  4. PAROXETINE [Suspect]
     Active Substance: PAROXETINE
     Indication: Memory impairment
  5. MIRTAZAPINE [Suspect]
     Active Substance: MIRTAZAPINE
     Indication: Memory impairment
     Dosage: UNK
     Route: 048
     Dates: start: 2010, end: 2020
  6. MIRTAZAPINE [Suspect]
     Active Substance: MIRTAZAPINE
     Indication: Affective disorder
     Dosage: 30 MILLIGRAM
     Dates: start: 2010, end: 2020
  7. MIRTAZAPINE [Suspect]
     Active Substance: MIRTAZAPINE
     Dosage: UNK
  8. LEVOFLOXACIN [Suspect]
     Active Substance: LEVOFLOXACIN
     Indication: Prostatic adenoma
     Dosage: 500 MILLIGRAM
     Route: 048
     Dates: start: 201703
  9. LEVOFLOXACIN [Suspect]
     Active Substance: LEVOFLOXACIN
     Indication: Hypertonic bladder
     Dosage: UNK
     Dates: start: 2018
  10. LEVOFLOXACIN [Suspect]
     Active Substance: LEVOFLOXACIN
     Indication: Escherichia infection
  11. ACETAMINOPHEN [Suspect]
     Active Substance: ACETAMINOPHEN
     Indication: Pain
     Dosage: UNK
     Dates: start: 2017
  12. ALPRAZOLAM [Suspect]
     Active Substance: ALPRAZOLAM
     Indication: Pain
     Dosage: 1 MILLIGRAM, TID
     Route: 048
     Dates: start: 2013
  13. ALPRAZOLAM [Suspect]
     Active Substance: ALPRAZOLAM
     Indication: Hypoaesthesia
     Dosage: 1 MILLIGRAM, QD
     Dates: start: 2013
  14. ALPRAZOLAM [Suspect]
     Active Substance: ALPRAZOLAM
     Indication: Sleep disorder
  15. KETOROLAC [Suspect]
     Active Substance: KETOROLAC TROMETHAMINE
     Indication: Pain
     Dosage: UNK
     Dates: start: 2017
  16. ALFUZOSIN [Suspect]
     Active Substance: ALFUZOSIN
     Indication: Hypertonic bladder
     Dosage: UNK
     Dates: start: 201703
  17. ALFUZOSIN [Suspect]
     Active Substance: ALFUZOSIN
     Dosage: UNK
     Dates: start: 2017
  18. OXYBUTYNIN. [Suspect]
     Active Substance: OXYBUTYNIN CHLORIDE
     Indication: Pain
     Dosage: UNK
     Dates: start: 201703
  19. CIPROFLOXACIN [Suspect]
     Active Substance: CIPROFLOXACIN
     Indication: Prostatic adenoma
     Dosage: UNK
     Route: 065
     Dates: start: 2014
  20. CIPROFLOXACIN [Suspect]
     Active Substance: CIPROFLOXACIN
     Indication: Hypertonic bladder
     Dosage: UNK
     Route: 048
     Dates: start: 201703
  21. CIPROFLOXACIN [Suspect]
     Active Substance: CIPROFLOXACIN
     Indication: Inflammation
     Dosage: UNK
     Route: 048
     Dates: start: 2017
  22. CIPROFLOXACIN [Suspect]
     Active Substance: CIPROFLOXACIN
     Indication: Benign prostatic hyperplasia
  23. CODEINE PHOSPHATE [Suspect]
     Active Substance: CODEINE PHOSPHATE
     Indication: Pain
     Dosage: UNK
     Dates: start: 2017
  24. TROSPIUM [Suspect]
     Active Substance: TROSPIUM
     Indication: Hypertonic bladder
     Dosage: UNK
     Route: 048
     Dates: start: 201703
  25. TROSPIUM [Suspect]
     Active Substance: TROSPIUM
     Dosage: UNK
     Route: 048
     Dates: start: 2017
  26. MOMETASONE [Suspect]
     Active Substance: MOMETASONE
     Indication: Dermatitis
     Dosage: UNK UNK, PRN
     Route: 061
  27. MOMETASONE [Suspect]
     Active Substance: MOMETASONE
     Dosage: UNK
     Route: 061
     Dates: start: 2018
  28. MOMETASONE [Suspect]
     Active Substance: MOMETASONE
     Dosage: UNK
     Route: 061
     Dates: start: 2018
  29. FESOTERODINE [Suspect]
     Active Substance: FESOTERODINE
     Indication: Hypertonic bladder
     Dosage: UNK
     Dates: start: 2017
  30. ETORICOXIB [Suspect]
     Active Substance: ETORICOXIB
     Indication: Hypertonic bladder
     Dosage: 60 MILLIGRAM (60 MG FOR 2 WEEKS)
     Dates: start: 201612
  31. ETORICOXIB [Suspect]
     Active Substance: ETORICOXIB
     Indication: Abdominal pain lower
     Dosage: UNK
     Dates: start: 201703
  32. PHLOROGLUCINOL [Suspect]
     Active Substance: PHLOROGLUCINOL
     Indication: Hypertonic bladder
     Dosage: UNK
     Dates: start: 201710
  33. PRULIFLOXACIN [Suspect]
     Active Substance: PRULIFLOXACIN
     Indication: Hypertonic bladder
     Dosage: UNK
     Dates: start: 2017
  34. MEROPENEM [Suspect]
     Active Substance: MEROPENEM
     Indication: Escherichia infection
     Dosage: UNK
     Route: 042
     Dates: start: 2018
  35. BECLOMETHASONE [Suspect]
     Active Substance: BECLOMETHASONE
     Indication: Hypertonic bladder
     Dosage: UNK
     Route: 054
     Dates: start: 201703
  36. BECLOMETHASONE [Suspect]
     Active Substance: BECLOMETHASONE
     Dosage: UNK
     Route: 054
     Dates: start: 2017
  37. MIRABEGRON [Suspect]
     Active Substance: MIRABEGRON
     Indication: Dysuria
     Dosage: UNK
     Dates: start: 2015
  38. MIRABEGRON [Suspect]
     Active Substance: MIRABEGRON
     Indication: Benign prostatic hyperplasia
  39. SOLIFENACIN [Suspect]
     Active Substance: SOLIFENACIN
     Indication: Benign prostatic hyperplasia
     Dosage: UNK
     Dates: start: 2014
  40. SERENOA REPENS WHOLE [Suspect]
     Active Substance: SERENOA REPENS WHOLE
     Indication: Hypertonic bladder
     Dosage: UNK
     Dates: start: 201703
  41. SERENOA REPENS WHOLE [Suspect]
     Active Substance: SERENOA REPENS WHOLE
     Dosage: UNK
     Dates: start: 2017
  42. PRULIFLOXACIN [Concomitant]
     Active Substance: PRULIFLOXACIN
     Indication: Hypertonic bladder
     Dosage: UNK
     Dates: start: 201703
  43. NALOXONE [Concomitant]
     Active Substance: NALOXONE
     Dosage: 20 MILLIGRAM, ONE TO 3 TIMES A DAY
     Dates: start: 201806
  44. SILODOSIN [Concomitant]
     Active Substance: SILODOSIN
     Dosage: 8 MILLIGRAM, QD
  45. QUETIAPINE FUMARATE [Concomitant]
     Active Substance: QUETIAPINE FUMARATE
     Dosage: 25 MILLIGRAM, IN THE EVENING
  46. PREGABALIN [Concomitant]
     Active Substance: PREGABALIN
     Dosage: UP TO 150+75 MG PER DAY
     Dates: start: 202007
  47. AMIKACIN [Concomitant]
     Active Substance: AMIKACIN
     Dosage: UNK UNK, BID
  48. ENOXAPARIN [Concomitant]
     Active Substance: ENOXAPARIN
     Dosage: UNK
     Route: 058
  49. DICLOFENAC SODIUM [Concomitant]
     Active Substance: DICLOFENAC SODIUM
     Dosage: 100 MILLIGRAM
  50. VENLAFAXINE [Concomitant]
     Active Substance: VENLAFAXINE HYDROCHLORIDE
     Dosage: 37.5 MG IN THE MORNING FOR SEVEN
  51. MIRTAZAPINE [Concomitant]
     Active Substance: MIRTAZAPINE
     Indication: Memory impairment
     Dosage: UNK
     Dates: end: 2020
  52. MIRTAZAPINE [Concomitant]
     Active Substance: MIRTAZAPINE
     Indication: Affective disorder
  53. POLYETHYLENE GLYCOLS [Concomitant]
     Active Substance: POLYETHYLENE GLYCOLS
     Dosage: 400 MILLIGRAM
  54. LACTULOSE [Concomitant]
     Active Substance: LACTULOSE
     Dosage: IN THE EVENING REGULATED
  55. TROSPIUM [Concomitant]
     Active Substance: TROSPIUM
     Indication: Hypertonic bladder
     Dosage: UNK
     Dates: start: 2017
  56. OXYBUTYNIN. [Concomitant]
     Active Substance: OXYBUTYNIN CHLORIDE
     Indication: Hypertonic bladder
     Dosage: UNK
     Dates: start: 2017
  57. SERTRALINE [Concomitant]
     Active Substance: SERTRALINE HYDROCHLORIDE
     Indication: Memory impairment
     Dosage: UNK
  58. SERTRALINE [Concomitant]
     Active Substance: SERTRALINE HYDROCHLORIDE
     Indication: Affective disorder
  59. ALFUZOSIN [Concomitant]
     Active Substance: ALFUZOSIN
     Indication: Hypertonic bladder
     Dosage: UNK
     Dates: start: 2017
  60. ALPRAZOLAM [Concomitant]
     Active Substance: ALPRAZOLAM
     Indication: Sleep disorder
     Dosage: 1 MILLIGRAM, QD
     Dates: start: 2013
  61. PAROXETINE [Concomitant]
     Active Substance: PAROXETINE
     Indication: Affective disorder
     Dosage: UNK
     Dates: start: 2010
  62. PAROXETINE [Concomitant]
     Active Substance: PAROXETINE
     Indication: Memory impairment

REACTIONS (30)
  - Klebsiella infection [Unknown]
  - Hypoaesthesia [Recovered/Resolved]
  - Sleep disorder [Recovered/Resolved]
  - Insomnia [Recovered/Resolved]
  - Oliguria [Recovered/Resolved]
  - Benign prostatic hyperplasia [Recovered/Resolved]
  - Urethral stenosis [Recovered/Resolved]
  - Micturition urgency [Recovering/Resolving]
  - Hypertonic bladder [Recovered/Resolved]
  - Oral candidiasis [Recovered/Resolved]
  - Depression [Recovering/Resolving]
  - Condition aggravated [Unknown]
  - Nervous system disorder [Recovered/Resolved]
  - Parapsoriasis [Unknown]
  - Rash [Unknown]
  - Cystitis interstitial [Unknown]
  - Escherichia infection [Recovered/Resolved]
  - Perineal pain [Unknown]
  - Abdominal pain [Unknown]
  - Salivary gland disorder [Recovered/Resolved]
  - Weight decreased [Unknown]
  - Constipation [Unknown]
  - Dysuria [Unknown]
  - Exostosis [Unknown]
  - Tendon disorder [Unknown]
  - Intentional product misuse [Unknown]
  - Drug ineffective [Unknown]
  - Product use in unapproved indication [Unknown]
  - Dysstasia [Unknown]
  - Muscle spasms [Unknown]

NARRATIVE: CASE EVENT DATE: 20130101
